FAERS Safety Report 6711591-X (Version None)
Quarter: 2010Q2

REPORT INFORMATION
  Report Type: 
  Country: None (occurrence: None)
  Receive Date: 20100505
  Receipt Date: 20100426
  Transmission Date: 20101027
  Serious: Yes (Hospitalization)
  Sender: FDA-Public Use
  Company Number: PHHY2010IN27422

PATIENT
  Age: 45 Year
  Sex: Female

DRUGS (2)
  1. SEBIVO [Suspect]
     Route: 048
  2. TENOFOVIR DISOPROXIL FUMARATE [Concomitant]

REACTIONS (1)
  - HAEMORRHAGE [None]
